FAERS Safety Report 18036737 (Version 2)
Quarter: 2020Q3

REPORT INFORMATION
  Report Type: Spontaneous
  Country: DE (occurrence: DE)
  Receive Date: 20200717
  Receipt Date: 20200722
  Transmission Date: 20201103
  Serious: Yes (Disabling)
  Sender: FDA-Public Use
  Company Number: NVSC2020DE177803

PATIENT
  Age: 73 Year
  Sex: Male
  Weight: 110 kg

DRUGS (7)
  1. VALSACOR [Concomitant]
     Active Substance: VALSARTAN
     Indication: PRODUCT USED FOR UNKNOWN INDICATION
     Dosage: FOR QUITE SOME TIME NOW
     Route: 065
  2. BICALUTAMIDE. [Suspect]
     Active Substance: BICALUTAMIDE
     Dosage: 75 MG
     Route: 065
     Dates: start: 2020
  3. BICALUTAMIDE. [Suspect]
     Active Substance: BICALUTAMIDE
     Dosage: 50 MG
     Route: 065
     Dates: start: 202005
  4. BICALUTAMIDE. [Suspect]
     Active Substance: BICALUTAMIDE
     Indication: PROSTATE CANCER
     Dosage: 150 MG
     Route: 065
     Dates: start: 201709, end: 202005
  5. PAMORELIN [Suspect]
     Active Substance: TRIPTORELIN PAMOATE
     Indication: PROSTATE CANCER
     Dosage: 3.75 MG, QMO (MONTHLY INJECTION)
     Route: 065
     Dates: start: 202004
  6. PAMORELIN [Suspect]
     Active Substance: TRIPTORELIN PAMOATE
     Dosage: 3.75 MG (MONTHLY INJECTION)
     Route: 030
     Dates: start: 20200424
  7. EBRANTIL [Concomitant]
     Active Substance: URAPIDIL
     Indication: PRODUCT USED FOR UNKNOWN INDICATION
     Dosage: FOR QUITE SOME TIME NOW
     Route: 065

REACTIONS (5)
  - Musculoskeletal disorder [Not Recovered/Not Resolved]
  - Product administered at inappropriate site [Unknown]
  - Back pain [Unknown]
  - Drug ineffective [Unknown]
  - Spinal disorder [Not Recovered/Not Resolved]

NARRATIVE: CASE EVENT DATE: 2020
